FAERS Safety Report 8465142-2 (Version None)
Quarter: 2012Q2

REPORT INFORMATION
  Report Type: 
  Country: None (occurrence: None)
  Receive Date: 20120626
  Receipt Date: 20120620
  Transmission Date: 20120825
  Serious: Yes (Hospitalization, Other)
  Sender: FDA-Public Use
  Company Number: US-PFIZER INC-2012149289

PATIENT
  Sex: Female
  Weight: 54.875 kg

DRUGS (6)
  1. EVISTA [Concomitant]
     Dosage: UNK
  2. REVATIO [Suspect]
     Indication: PULMONARY ARTERIAL HYPERTENSION
     Dosage: 20 MG, 3X/DAY
     Route: 048
     Dates: start: 20110701
  3. METOPROLOL [Concomitant]
     Dosage: UNK
  4. LEVOTHYROXINE [Concomitant]
     Dosage: UNK
  5. AVAPRO [Concomitant]
     Dosage: UNK
  6. COUMADIN [Concomitant]
     Dosage: UNK

REACTIONS (3)
  - THYROID DISORDER [None]
  - RHINORRHOEA [None]
  - BLOOD CALCIUM DECREASED [None]
